FAERS Safety Report 9137808 (Version 2)
Quarter: 2013Q2

REPORT INFORMATION
  Report Type: Spontaneous
  Country: GB (occurrence: GB)
  Receive Date: 20130304
  Receipt Date: 20130412
  Transmission Date: 20140414
  Serious: Yes (Other)
  Sender: FDA-Public Use
  Company Number: GB-BAYER-2013-026431

PATIENT
  Age: 41 Year
  Sex: Female

DRUGS (1)
  1. MIRENA [Suspect]
     Indication: CONTRACEPTION
     Dosage: 20 MCG/24HR, CONT
     Route: 015
     Dates: start: 20121113

REACTIONS (6)
  - Amenorrhoea [Not Recovered/Not Resolved]
  - Ocular hypertension [None]
  - Retinal artery embolism [None]
  - Photopsia [None]
  - Blindness transient [None]
  - Dizziness [Recovered/Resolved]
